FAERS Safety Report 4514017-X (Version None)
Quarter: 2004Q4

REPORT INFORMATION
  Report Type: 
  Country: None (occurrence: None)
  Receive Date: 20041130
  Receipt Date: 20041019
  Transmission Date: 20050328
  Serious: No
  Sender: FDA-Public Use
  Company Number: US-GLAXOSMITHKLINE-A0530494A

PATIENT
  Age: 38 Year
  Sex: Female

DRUGS (3)
  1. WELLBUTRIN XL [Suspect]
     Indication: ATTENTION DEFICIT/HYPERACTIVITY DISORDER
     Route: 048
  2. AMPHETAMINE [Concomitant]
  3. DEXATRIM [Concomitant]

REACTIONS (3)
  - DECREASED APPETITE [None]
  - HANGOVER [None]
  - SOMNOLENCE [None]
